FAERS Safety Report 8973986 (Version 1)
Quarter: 2012Q4

REPORT INFORMATION
  Report Type: 
  Country: US (occurrence: US)
  Receive Date: 20121218
  Receipt Date: 20121218
  Transmission Date: 20130627
  Serious: No
  Sender: FDA-Public Use
  Company Number: US-BRISTOL-MYERS SQUIBB COMPANY-16829905

PATIENT
  Age: 3 None
  Sex: Male

DRUGS (1)
  1. ABILIFY [Suspect]
     Indication: MAJOR DEPRESSION
     Dosage: Dose reduced to 5mg.

REACTIONS (1)
  - Oculogyric crisis [Recovered/Resolved]
